FAERS Safety Report 15048472 (Version 2)
Quarter: 2018Q3

REPORT INFORMATION
  Report Type: Spontaneous
  Country: DE (occurrence: DE)
  Receive Date: 20180622
  Receipt Date: 20180706
  Transmission Date: 20181010
  Serious: Yes (Hospitalization)
  Sender: FDA-Public Use
  Company Number: DE-ROCHE-2140954

PATIENT
  Age: 35 Year
  Sex: Female

DRUGS (2)
  1. OCREVUS [Suspect]
     Active Substance: OCRELIZUMAB
     Indication: MULTIPLE SCLEROSIS
     Route: 065
     Dates: start: 20180514
  2. ZINBRYTA [Suspect]
     Active Substance: DACLIZUMAB
     Indication: MULTIPLE SCLEROSIS
     Route: 058
     Dates: start: 201704, end: 201803

REACTIONS (4)
  - Necrotising myositis [Not Recovered/Not Resolved]
  - Paresis [Unknown]
  - Muscle disorder [Unknown]
  - Orbital myositis [Not Recovered/Not Resolved]

NARRATIVE: CASE EVENT DATE: 20180522
